FAERS Safety Report 25300014 (Version 2)
Quarter: 2025Q2

REPORT INFORMATION
  Report Type: Other
  Country: US (occurrence: US)
  Receive Date: 20250512
  Receipt Date: 20250516
  Transmission Date: 20250717
  Serious: No
  Sender: TRIS PHARMA, INC.
  Company Number: US-TRIS PHARMA, INC.-25US011957

PATIENT

DRUGS (1)
  1. METHYLPHENIDATE HYDROCHLORIDE [Suspect]
     Active Substance: METHYLPHENIDATE HYDROCHLORIDE
     Indication: Product used for unknown indication
     Route: 048

REACTIONS (6)
  - Eye movement disorder [Unknown]
  - Sedation [Unknown]
  - Abdominal discomfort [Unknown]
  - Product quality issue [Unknown]
  - Dyskinesia [Unknown]
  - Headache [Unknown]

NARRATIVE: CASE EVENT DATE: 20250501
